FAERS Safety Report 8410976-3 (Version None)
Quarter: 2012Q2

REPORT INFORMATION
  Report Type: 
  Country: None (occurrence: None)
  Receive Date: 20120605
  Receipt Date: 20120601
  Transmission Date: 20120825
  Serious: Yes (Other)
  Sender: FDA-Public Use
  Company Number: US-BAYER-200939972NA

PATIENT
  Age: 19 Year
  Sex: Male
  Weight: 65.76 kg

DRUGS (17)
  1. TRASYLOL [Suspect]
     Dosage: 70CC/HR CONTINUOUS
     Dates: start: 20050623, end: 20050623
  2. FENTANYL [Concomitant]
     Dosage: UNK
     Dates: start: 20050623, end: 20050623
  3. PROTAMINE SULFATE [Concomitant]
     Dosage: UNK
     Dates: start: 20050623, end: 20050623
  4. HEPARIN [Concomitant]
     Dosage: UNK
     Dates: start: 20050623, end: 20050623
  5. LIDOCAINE [Concomitant]
     Dosage: UNK
     Dates: start: 20050623, end: 20050623
  6. SOLU-MEDROL [Concomitant]
     Dosage: UNK
     Dates: start: 20080519
  7. PANCURONIUM BROMIDE [Concomitant]
     Dosage: UNK
     Dates: start: 20050623, end: 20050623
  8. DOPAMINE HCL [Concomitant]
     Dosage: UNK
     Dates: start: 20050623
  9. TRASYLOL [Suspect]
     Dosage: 2 MILLION UNITS PUMP PRIME
     Dates: start: 20050623, end: 20050623
  10. CLARITIN [Concomitant]
     Indication: SEASONAL ALLERGY
  11. LASIX [Concomitant]
     Dosage: UNK
     Dates: start: 20050623, end: 20050623
  12. TRASYLOL [Suspect]
     Indication: AORTIC SURGERY
     Dosage: 1.5 MILLION UNITS LOADINF DOSE
     Route: 042
     Dates: start: 20050623
  13. SOLU-MEDROL [Concomitant]
     Dosage: UNK
     Dates: start: 20050623, end: 20050623
  14. MANNITOL [Concomitant]
     Dosage: UNK
     Dates: start: 20050623, end: 20050623
  15. MIDAZOLAM [Concomitant]
     Dosage: UNK
     Dates: start: 20050623, end: 20050623
  16. DIPHENHYDRAMINE HCL [Concomitant]
     Dosage: UNK
     Dates: start: 20050623, end: 20050623
  17. DOBUTAMINE HCL [Concomitant]
     Dosage: UNK
     Dates: start: 20050623

REACTIONS (11)
  - RENAL FAILURE [None]
  - ANXIETY [None]
  - INJURY [None]
  - DEPRESSION [None]
  - MULTI-ORGAN FAILURE [None]
  - PSYCHOLOGICAL TRAUMA [None]
  - FEAR [None]
  - PAIN [None]
  - ANHEDONIA [None]
  - RENAL INJURY [None]
  - UNEVALUABLE EVENT [None]
